FAERS Safety Report 4949586-9 (Version None)
Quarter: 2006Q1

REPORT INFORMATION
  Report Type: 
  Country: None (occurrence: None)
  Receive Date: 20060316
  Receipt Date: 20060308
  Transmission Date: 20060701
  Serious: Yes (Death)
  Sender: FDA-Public Use
  Company Number: 20062841

PATIENT
  Sex: Male

DRUGS (1)
  1. LIORESAL [Suspect]
     Indication: MUSCLE SPASTICITY
     Dosage: 630 MCG, DAILY, INTRATHECAL
     Route: 037

REACTIONS (11)
  - ACUTE RESPIRATORY DISTRESS SYNDROME [None]
  - BRADYARRHYTHMIA [None]
  - BRONCHIAL OBSTRUCTION [None]
  - CONDITION AGGRAVATED [None]
  - CONVULSION [None]
  - INTUBATION COMPLICATION [None]
  - MENTAL STATUS CHANGES [None]
  - PNEUMONIA [None]
  - SEPSIS [None]
  - TACHYARRHYTHMIA [None]
  - TORSADE DE POINTES [None]
